FAERS Safety Report 6577789-9 (Version None)
Quarter: 2010Q1

REPORT INFORMATION
  Report Type: 
  Country: None (occurrence: None)
  Receive Date: 20100211
  Receipt Date: 20100201
  Transmission Date: 20100710
  Serious: Yes (Life-Threatening, Hospitalization)
  Sender: FDA-Public Use
  Company Number: JP-BAYER-201010149BYL

PATIENT
  Age: 65 Year
  Sex: Male
  Weight: 46 kg

DRUGS (7)
  1. NEXAVAR [Suspect]
     Indication: HEPATIC NEOPLASM MALIGNANT
     Dosage: TOTAL DAILY DOSE: 800 MG  UNIT DOSE: 200 MG
     Route: 048
     Dates: start: 20091225, end: 20100104
  2. LOXONIN [Concomitant]
     Indication: PAIN
     Dosage: UNIT DOSE: 60 MG
     Route: 048
     Dates: start: 20091211
  3. MUCOSTA [Concomitant]
     Indication: PROPHYLAXIS AGAINST GASTROINTESTINAL ULCER
     Dosage: UNIT DOSE: 100 MG
     Route: 048
     Dates: start: 20091211
  4. LASIX [Concomitant]
     Indication: ASCITES
     Dosage: UNIT DOSE: 20 MG
     Route: 042
     Dates: start: 20100105, end: 20100121
  5. LASIX [Concomitant]
     Dosage: UNIT DOSE: 40 MG
     Route: 048
     Dates: start: 20091217, end: 20100104
  6. LASIX [Concomitant]
     Dosage: UNIT DOSE: 20 MG
     Route: 048
     Dates: start: 20091213, end: 20091216
  7. ALDACTONE [Concomitant]
     Indication: ASCITES
     Dosage: UNIT DOSE: 25 MG
     Route: 048
     Dates: start: 20091213, end: 20100104

REACTIONS (1)
  - PLATELET COUNT DECREASED [None]
